FAERS Safety Report 20818725 (Version 1)
Quarter: 2022Q2

REPORT INFORMATION
  Report Type: Spontaneous
  Country: US (occurrence: US)
  Receive Date: 20220512
  Receipt Date: 20220512
  Transmission Date: 20220721
  Serious: No
  Sender: FDA-Public Use
  Company Number: US-PFIZER INC-202200158132

PATIENT
  Age: 58 Year
  Sex: Female
  Weight: 137.44 kg

DRUGS (2)
  1. DOXYCYCLINE HYCLATE [Suspect]
     Active Substance: DOXYCYCLINE HYCLATE
     Dosage: 100 MG, 1X/DAY (100MG CAPSULES, ONE CAPSULE BY MOUTH 10 DAYS)
     Route: 048
  2. DEXAMETHASONE [Suspect]
     Active Substance: DEXAMETHASONE
     Dosage: UNK

REACTIONS (5)
  - Off label use [Unknown]
  - Drug hypersensitivity [Unknown]
  - Urticaria [Unknown]
  - Swelling face [Unknown]
  - Pruritus [Unknown]
